FAERS Safety Report 13466867 (Version 2)
Quarter: 2017Q2

REPORT INFORMATION
  Report Type: Report from Study
  Country: US (occurrence: US)
  Receive Date: 20170421
  Receipt Date: 20170628
  Transmission Date: 20170830
  Serious: Yes (Other)
  Sender: FDA-Public Use
  Company Number: US-TEVA-761081USA

PATIENT
  Age: 49 Year
  Sex: Female

DRUGS (3)
  1. PROLASE [Concomitant]
     Indication: GASTRIC DISORDER
  2. CINQAIR [Suspect]
     Active Substance: RESLIZUMAB
     Dosage: 3 MG/KG
     Route: 042
     Dates: start: 20170310
  3. ANAVAR [Concomitant]
     Active Substance: OXANDROLONE
     Indication: ANXIETY

REACTIONS (8)
  - Chest discomfort [Unknown]
  - Pharyngeal oedema [Unknown]
  - Headache [Unknown]
  - Throat tightness [Unknown]
  - Muscle tightness [Unknown]
  - Dyspnoea [Unknown]
  - Vomiting [Unknown]
  - Dysphonia [Unknown]

NARRATIVE: CASE EVENT DATE: 201704
